FAERS Safety Report 7510277-1 (Version None)
Quarter: 2011Q2

REPORT INFORMATION
  Report Type: 
  Country: None (occurrence: None)
  Receive Date: 20110527
  Receipt Date: 20100128
  Transmission Date: 20111010
  Serious: No
  Sender: FDA-Public Use
  Company Number: US-BAYER-201012796NA

PATIENT

DRUGS (4)
  1. IBUPROFEN [Concomitant]
  2. AVELOX [Suspect]
     Indication: PRODUCT USED FOR UNKNOWN INDICATION
  3. SINGULAIR [Concomitant]
  4. UNKNOWN DRUG [Concomitant]

REACTIONS (1)
  - ARTHRALGIA [None]
